FAERS Safety Report 9346468 (Version 2)
Quarter: 2013Q3

REPORT INFORMATION
  Report Type: Spontaneous
  Country: US (occurrence: US)
  Receive Date: 20130613
  Receipt Date: 20130829
  Transmission Date: 20140515
  Serious: Yes (Hospitalization, Other)
  Sender: FDA-Public Use
  Company Number: US-BAYER-2013-072117

PATIENT
  Age: 35 Year
  Sex: Female
  Weight: 92.52 kg

DRUGS (6)
  1. MIRENA [Suspect]
     Indication: CONTRACEPTION
     Dosage: 20 MCG/24HR, CONT
     Route: 015
     Dates: start: 201305, end: 20130606
  2. MIRENA [Suspect]
     Indication: MENORRHAGIA
     Dosage: 20 MCG/24HR, CONT
     Route: 015
  3. DIOVAN [Concomitant]
  4. LABETALOL [Concomitant]
  5. PRILOSEC [Concomitant]
  6. VITAMIN D [Concomitant]
     Dosage: UNK U, UNK

REACTIONS (7)
  - Vaginal haemorrhage [None]
  - Adverse event [None]
  - Menorrhagia [None]
  - Embedded device [None]
  - Drug ineffective [None]
  - Genital haemorrhage [None]
  - Ovarian cyst [None]
